FAERS Safety Report 5205914-0 (Version None)
Quarter: 2006Q4

REPORT INFORMATION
  Report Type: 
  Country: None (occurrence: None)
  Receive Date: 20061026
  Receipt Date: 20060727
  Transmission Date: 20070319
  Serious: No
  Sender: FDA-Public Use
  Company Number: 2006092653

PATIENT
  Age: 26 Year
  Sex: Female

DRUGS (3)
  1. LYRICA [Suspect]
     Indication: TRIGEMINAL NEURALGIA
     Dates: end: 20060101
  2. NAMENDA [Suspect]
     Indication: DRUG USE FOR UNKNOWN INDICATION
  3. CONTRACEPTIVE, UNSPECIFIED (CONTRACEPTIVE, UNSPECIFIED) [Concomitant]

REACTIONS (2)
  - DEPRESSION [None]
  - DRUG INEFFECTIVE [None]
